FAERS Safety Report 10383176 (Version 2)
Quarter: 2014Q3

REPORT INFORMATION
  Report Type: Spontaneous
  Country: JP (occurrence: JP)
  Receive Date: 20140813
  Receipt Date: 20140917
  Transmission Date: 20150326
  Serious: Yes (Other)
  Sender: FDA-Public Use
  Company Number: PHHY2014JP098944

PATIENT
  Age: 70 Year
  Sex: Female

DRUGS (3)
  1. HYSRON H [Concomitant]
     Dosage: 400 MG, UNK
     Route: 048
     Dates: start: 20130626
  2. ZOMETA [Suspect]
     Active Substance: ZOLEDRONIC ACID
     Indication: METASTASES TO BONE
     Dosage: 4 MG, PER ADMINISTRATION
     Route: 041
     Dates: start: 20130801
  3. FARESTON [Concomitant]
     Active Substance: TOREMIFENE CITRATE
     Dosage: 120 MG, UNK
     Route: 048
     Dates: start: 20140304

REACTIONS (5)
  - Osteonecrosis of jaw [Not Recovered/Not Resolved]
  - Gingival abscess [Unknown]
  - Oral cavity fistula [Unknown]
  - Gingivitis [Unknown]
  - Oral pustule [Unknown]

NARRATIVE: CASE EVENT DATE: 201402
